FAERS Safety Report 12654153 (Version 1)
Quarter: 2016Q3

REPORT INFORMATION
  Report Type: Spontaneous
  Country: US (occurrence: None)
  Receive Date: 20160815
  Receipt Date: 20160815
  Transmission Date: 20161109
  Serious: Yes (Disabling)
  Sender: FDA-Public Use
  Company Number: None

PATIENT
  Age: 47 Year
  Sex: Female
  Weight: 59.88 kg

DRUGS (5)
  1. FISH OIL [Concomitant]
     Active Substance: FISH OIL
  2. MAGNESIUM [Concomitant]
     Active Substance: MAGNESIUM
  3. ESCITALOPRAM, 10 MG [Suspect]
     Active Substance: ESCITALOPRAM OXALATE
     Indication: HOT FLUSH
     Route: 048
     Dates: start: 20160423, end: 20160427
  4. ESTROGEN [Concomitant]
     Active Substance: ESTRONE\SUS SCROFA OVARY
  5. WOMEN^S MULTI-VITAMIN [Concomitant]

REACTIONS (18)
  - Pharyngeal paraesthesia [None]
  - Fatigue [None]
  - Tremor [None]
  - Hypoaesthesia [None]
  - Feeling abnormal [None]
  - Paraesthesia [None]
  - Headache [None]
  - Impaired work ability [None]
  - Paraesthesia oral [None]
  - Balance disorder [None]
  - Memory impairment [None]
  - Dizziness [None]
  - Ear pain [None]
  - Gait disturbance [None]
  - Aphasia [None]
  - Asthenia [None]
  - Vision blurred [None]
  - Nerve injury [None]

NARRATIVE: CASE EVENT DATE: 20160423
